FAERS Safety Report 4435261-6 (Version None)
Quarter: 2004Q3

REPORT INFORMATION
  Report Type: 
  Country: None (occurrence: None)
  Receive Date: 20040827
  Receipt Date: 20040819
  Transmission Date: 20050211
  Serious: Yes (Hospitalization)
  Sender: FDA-Public Use
  Company Number: DEWYE989719AUG04

PATIENT
  Age: 68 Year
  Sex: Female

DRUGS (2)
  1. ENBREL [Suspect]
     Indication: DRUG USE FOR UNKNOWN INDICATION
     Dosage: UNKNOWN
     Route: 058
  2. METHOTREXATE [Suspect]
     Dosage: 15 MG

REACTIONS (3)
  - BURSITIS [None]
  - LOCALISED INFECTION [None]
  - WOUND INFECTION [None]
